FAERS Safety Report 17097088 (Version 1)
Quarter: 2019Q4

REPORT INFORMATION
  Report Type: Spontaneous
  Country: NL (occurrence: NL)
  Receive Date: 20191202
  Receipt Date: 20191202
  Transmission Date: 20200122
  Serious: Yes (Other)
  Sender: FDA-Public Use
  Company Number: NL-SUN PHARMACEUTICAL INDUSTRIES LTD-2019RR-229471

PATIENT
  Age: 77 Year
  Sex: Male
  Weight: 85 kg

DRUGS (21)
  1. GEMCITABINE. [Suspect]
     Active Substance: GEMCITABINE
     Indication: PANCREATIC CARCINOMA
     Dosage: 1 DOSAGE FORM, UNK, 2000MG/500ML
     Route: 050
     Dates: start: 20191021, end: 20191021
  2. MAGNESIUMHYDROXIDE KAUWTABLET 724 MG [Concomitant]
     Indication: PRODUCT USED FOR UNKNOWN INDICATION
     Dosage: 1 DOSAGE FORM, UNK
     Route: 065
     Dates: start: 20191021
  3. ACETYLSALICYLZUUR DISPERTABLET 80MG [Concomitant]
     Active Substance: ASPIRIN
     Indication: PRODUCT USED FOR UNKNOWN INDICATION
     Dosage: 80 MICROGRAM, DAILY
     Route: 065
  4. PERINDOPRIL TABLET 4MG (ERBUMINE) [Concomitant]
     Indication: PRODUCT USED FOR UNKNOWN INDICATION
     Dosage: 8 MILLIGRAM, DAILY
     Route: 065
  5. ATORVASTATINE TABLET 20MG [Concomitant]
     Indication: PRODUCT USED FOR UNKNOWN INDICATION
     Dosage: 20 MILLIGRAM, DAILY
     Route: 065
  6. NITROGLYCERINE SPRAY SUBLING. 0,4MG/DONITROGLYCERINE SPRAY SUBLING [Concomitant]
     Indication: PRODUCT USED FOR UNKNOWN INDICATION
     Dosage: 1 DOSAGE FORM, UNK
     Route: 065
  7. AMLODIPINE TABLET 5MG AMLODIPINE TABLET  5MG [Concomitant]
     Indication: PRODUCT USED FOR UNKNOWN INDICATION
     Dosage: 5 MILLIGRAM, DAILY
     Route: 065
  8. TRAVOPROST/ TIMOLOL OOGDRUPPELS 40UG/5MG/MLTRAVOPROST/TIMOLOL OOGDRU [Concomitant]
     Indication: PRODUCT USED FOR UNKNOWN INDICATION
     Dosage: 1 GTT, DAILY
     Route: 065
  9. COLECALCIFEROL CAPSULE  25.000IE [Concomitant]
     Indication: PRODUCT USED FOR UNKNOWN INDICATION
     Dosage: 25000 INTERNATIONAL UNIT, MONTHLY
     Route: 065
  10. ONDANSETRON TABLET 8MG [Concomitant]
     Indication: PRODUCT USED FOR UNKNOWN INDICATION
     Dosage: 8 MILLIGRAM, DAILY
     Route: 065
  11. TIMOLOL OOGGEL 1MG/G [Concomitant]
     Indication: PRODUCT USED FOR UNKNOWN INDICATION
     Dosage: 1 GTT, DAILY
     Route: 065
  12. MACROGOL/ZOUTEN PDR V DRANK (MOVIC/MOLAX/LAXT/GEN) [Concomitant]
     Indication: PRODUCT USED FOR UNKNOWN INDICATION
     Dosage: 1 DOSAGE FORM, DAILY
     Route: 065
  13. METOCLOPRAMIDE TABLET 10MGMETOCLOPRAMIDE TABLET 10MG [Concomitant]
     Indication: PRODUCT USED FOR UNKNOWN INDICATION
     Dosage: 1 DOSAGE FORM, UNK
     Route: 065
     Dates: start: 20191021
  14. METOPROLOL TABLET MGA  50MG (SUCCINAAT)METOPROLOL TABLET MGA  50MG [Concomitant]
     Indication: PRODUCT USED FOR UNKNOWN INDICATION
     Dosage: 25 MILLIGRAM, DAILY
     Route: 065
  15. PARACETAMOL TABLET  500MG [Concomitant]
     Active Substance: ACETAMINOPHEN
     Indication: PRODUCT USED FOR UNKNOWN INDICATION
     Dosage: 1000 MILLIGRAM, TID
     Route: 065
  16. HYALURON/CARBOM OOGDR 0,15/0,15MG/ML (CARB 981) [Concomitant]
     Indication: PRODUCT USED FOR UNKNOWN INDICATION
     Dosage: 1 DOSAGE FORM, UNK
     Route: 065
  17. BIONAL VISOLIE CAPSULE [Concomitant]
     Indication: PRODUCT USED FOR UNKNOWN INDICATION
     Dosage: 1 DOSAGE FORM, DAILY
     Route: 065
  18. PACLITAXEL INFUSIEPOEDER 100MG (NANODEELTJES) [Concomitant]
     Indication: PRODUCT USED FOR UNKNOWN INDICATION
     Dosage: 250 MILLIGRAM, DAILY
     Route: 065
     Dates: start: 20191021
  19. CLEMASTINE TABLET 1MG [Concomitant]
     Indication: PRODUCT USED FOR UNKNOWN INDICATION
     Dosage: 1 MILLIGRAM, BID
     Route: 065
  20. AOV 512 MAGNESIUM AC TABLET 200MG [Concomitant]
     Indication: PRODUCT USED FOR UNKNOWN INDICATION
     Dosage: 1 DOSAGE FORM, DAILY
     Route: 065
  21. OMEPRAZOL CAPSULE MSR 20MG [Concomitant]
     Active Substance: OMEPRAZOLE
     Indication: PRODUCT USED FOR UNKNOWN INDICATION
     Dosage: 20 MILLIGRAM, DAILY
     Route: 065

REACTIONS (5)
  - Erythema [Recovered/Resolved]
  - Retching [Recovered/Resolved]
  - Hypertension [Recovered/Resolved]
  - Salivary hypersecretion [Recovered/Resolved]
  - Loss of consciousness [Recovered/Resolved]

NARRATIVE: CASE EVENT DATE: 20191021
